FAERS Safety Report 8823028 (Version 2)
Quarter: 2012Q4

REPORT INFORMATION
  Report Type: Report from Study
  Country: US (occurrence: US)
  Receive Date: 20121003
  Receipt Date: 20121015
  Transmission Date: 20130627
  Serious: Yes (Other)
  Sender: FDA-Public Use
  Company Number: US-JNJFOC-20121001126

PATIENT
  Age: 15 Year
  Sex: Female
  Weight: 59.5 kg

DRUGS (6)
  1. REMICADE [Suspect]
     Indication: INFLAMMATORY BOWEL DISEASE
     Route: 042
     Dates: start: 20111003
  2. REMICADE [Suspect]
     Indication: INFLAMMATORY BOWEL DISEASE
     Route: 042
     Dates: start: 20120814
  3. CITRACAL W / VITAMIN D [Concomitant]
  4. FISH OIL [Concomitant]
  5. 5-ASA [Concomitant]
     Route: 048
  6. PROBIOTICS [Concomitant]

REACTIONS (1)
  - Clostridium difficile infection [Recovered/Resolved]
